FAERS Safety Report 4465858-9 (Version None)
Quarter: 2004Q3

REPORT INFORMATION
  Report Type: 
  Country: None (occurrence: None)
  Receive Date: 20040929
  Receipt Date: 20040929
  Transmission Date: 20050211
  Serious: Yes (Death)
  Sender: FDA-Public Use
  Company Number: None

PATIENT
  Sex: Female

DRUGS (11)
  1. TEMODAR [Suspect]
     Indication: ANAPLASTIC ASTROCYTOMA
     Dosage: 1900 MG D1-5 Q 28 DAYS ORAL
     Route: 048
     Dates: start: 20040901, end: 20040905
  2. COLACE [Concomitant]
  3. MULTI-VITAMIN [Concomitant]
  4. FOSAMAX [Concomitant]
  5. AVALIDE [Concomitant]
  6. PREVACID [Concomitant]
  7. LIPITOR [Concomitant]
  8. TAPAZOLE [Concomitant]
  9. CALCIUM/VITAMIN D [Concomitant]
  10. DECADRON [Concomitant]
  11. MENTAX [Concomitant]

REACTIONS (13)
  - ACUTE MYOCARDIAL INFARCTION [None]
  - BRAIN OEDEMA [None]
  - CARDIO-RESPIRATORY ARREST [None]
  - CIRCULATORY COLLAPSE [None]
  - COMA [None]
  - CYANOSIS [None]
  - ELECTROMECHANICAL DISSOCIATION [None]
  - EMBOLISM [None]
  - HEMIPARESIS [None]
  - PULSE ABSENT [None]
  - PUPIL FIXED [None]
  - PUPILLARY REFLEX IMPAIRED [None]
  - SYNCOPE [None]
